FAERS Safety Report 18448809 (Version 1)
Quarter: 2020Q4

REPORT INFORMATION
  Report Type: Spontaneous
  Country: SG (occurrence: SG)
  Receive Date: 20201101
  Receipt Date: 20201101
  Transmission Date: 20210114
  Serious: Yes (Life-Threatening, Hospitalization, Other)
  Sender: FDA-Public Use
  Company Number: SG-LUPIN PHARMACEUTICALS INC.-2020-07975

PATIENT
  Age: 45 Year
  Sex: Male

DRUGS (1)
  1. AMLODIPINE [Suspect]
     Active Substance: AMLODIPINE BESYLATE
     Indication: PRODUCT USED FOR UNKNOWN INDICATION
     Dosage: 30 DOSAGE FORM (INGESTED 30 TABLETS)
     Route: 048

REACTIONS (11)
  - Hypotension [Recovering/Resolving]
  - Wrong product administered [Unknown]
  - Sinus bradycardia [Recovering/Resolving]
  - Metabolic acidosis [Recovered/Resolved]
  - Blood glucose increased [Recovering/Resolving]
  - Accidental overdose [Unknown]
  - Toxicity to various agents [Recovering/Resolving]
  - Syncope [Recovering/Resolving]
  - Somnolence [Recovering/Resolving]
  - Blood creatinine increased [Recovering/Resolving]
  - Loss of consciousness [Recovering/Resolving]
